APPROVED DRUG PRODUCT: AMMONIA N 13
Active Ingredient: AMMONIA N-13
Strength: 30mCi-300mCi/8ML (3.75-37.5mCi/ML)
Dosage Form/Route: INJECTABLE;INTRAVENOUS
Application: N022119 | Product #001 | TE Code: AP
Applicant: FEINSTEIN INSTITUTE MEDICAL RESEARCH
Approved: Aug 23, 2007 | RLD: Yes | RS: Yes | Type: RX